FAERS Safety Report 6807033-6 (Version None)
Quarter: 2010Q2

REPORT INFORMATION
  Report Type: 
  Country: None (occurrence: None)
  Receive Date: 20100628
  Receipt Date: 20100628
  Transmission Date: 20101027
  Serious: Yes (Hospitalization)
  Sender: FDA-Public Use
  Company Number: None

PATIENT
  Sex: Male
  Weight: 104 kg

DRUGS (2)
  1. TAXOTERE [Suspect]
     Dosage: 167 MG
  2. ZOLADEX [Suspect]
     Dosage: 10.8 MG

REACTIONS (10)
  - ABDOMINAL PAIN [None]
  - ASTHENIA [None]
  - CONSTIPATION [None]
  - HYPOPHAGIA [None]
  - HYPOTENSION [None]
  - NEUTROPENIA [None]
  - PAINFUL DEFAECATION [None]
  - PROCTALGIA [None]
  - PYREXIA [None]
  - RECTAL FISSURE [None]
